FAERS Safety Report 8525428-X (Version None)
Quarter: 2012Q3

REPORT INFORMATION
  Report Type: 
  Country: None (occurrence: None)
  Receive Date: 20120720
  Receipt Date: 20120709
  Transmission Date: 20120928
  Serious: Yes (Death, Hospitalization)
  Sender: FDA-Public Use
  Company Number: JP-COVIDIEN/TYCO HEALTHCARE/MALLINCKRODT-T201202776

PATIENT
  Sex: Female
  Weight: 55.9 kg

DRUGS (11)
  1. METHADONE HCL [Suspect]
     Indication: CANCER PAIN
     Dosage: 30 MG, QD
     Route: 048
     Dates: start: 20120612, end: 20120704
  2. TRYPTANOL                          /00002202/ [Concomitant]
     Dosage: 10 MG, QD
     Dates: end: 20120703
  3. GABAPENTIN [Concomitant]
     Dosage: 800 MG, BID
     Dates: end: 20120705
  4. METHADONE HCL [Suspect]
     Dosage: 20 MG, QD
     Route: 048
     Dates: start: 20120605, end: 20120611
  5. MUCOSTA [Concomitant]
     Dosage: 300 MG, TID
     Dates: end: 20120705
  6. LOXONIN [Concomitant]
     Dosage: 180 MG, TID
     Dates: end: 20120706
  7. OXINORM                            /00045603/ [Concomitant]
     Dosage: 10 MG, PRN
     Dates: start: 20120605, end: 20120702
  8. METHADONE HCL [Suspect]
     Dosage: 15 MG, QD
     Route: 048
     Dates: start: 20120413, end: 20120604
  9. METRONIDAZOLE [Concomitant]
     Dosage: ADEQUATE DOSE FOR EXTERNAL USE
     Dates: start: 20120421
  10. MAGMITT [Concomitant]
     Dosage: 990 MG, TID
     Dates: start: 20120417, end: 20120705
  11. PROPETO [Concomitant]
     Dosage: ADEQUATE DOSE FOR EXTERNAL USE

REACTIONS (1)
  - BREAST CANCER [None]
